FAERS Safety Report 13774126 (Version 1)
Quarter: 2017Q3

REPORT INFORMATION
  Report Type: Spontaneous
  Country: US (occurrence: US)
  Receive Date: 20170721
  Receipt Date: 20170721
  Transmission Date: 20171127
  Serious: No
  Sender: FDA-Public Use
  Company Number: US-BAUSCH-BL-2016-018171

PATIENT
  Sex: Female
  Weight: 49.94 kg

DRUGS (3)
  1. XIFAXAN [Suspect]
     Active Substance: RIFAXIMIN
     Route: 048
     Dates: start: 2016, end: 20160722
  2. XIFAXAN [Suspect]
     Active Substance: RIFAXIMIN
     Indication: IRRITABLE BOWEL SYNDROME
     Route: 048
     Dates: start: 201606
  3. XIFAXAN [Suspect]
     Active Substance: RIFAXIMIN
     Dosage: ONE-HALF TABLET BY MOUTH TWICE DAILY
     Route: 048
     Dates: start: 2016

REACTIONS (4)
  - Drug ineffective [Unknown]
  - Irritable bowel syndrome [Not Recovered/Not Resolved]
  - Memory impairment [Not Recovered/Not Resolved]
  - Drug administration error [Unknown]

NARRATIVE: CASE EVENT DATE: 2016
